FAERS Safety Report 5290956-X (Version None)
Quarter: 2007Q2

REPORT INFORMATION
  Report Type: 
  Country: None (occurrence: None)
  Receive Date: 20070409
  Receipt Date: 20070406
  Transmission Date: 20071010
  Serious: Yes (Hospitalization)
  Sender: FDA-Public Use
  Company Number: US-BRISTOL-MYERS SQUIBB COMPANY-13742002

PATIENT
  Age: 63 Year
  Sex: Female
  Weight: 182 kg

DRUGS (12)
  1. PACLITAXEL [Suspect]
     Indication: BREAST CANCER METASTATIC
     Dosage: DOSING ON DAYS 1,8,15 PER CYCLE
     Route: 042
     Dates: start: 20070216, end: 20070222
  2. BEVACIZUMAB [Suspect]
     Indication: BREAST CANCER METASTATIC
     Route: 042
     Dates: start: 20070216, end: 20070216
  3. BACTRIM DS [Concomitant]
  4. HYDROCODONE TARTRATE+IBUPROFEN [Concomitant]
  5. PRAVACHOL [Concomitant]
  6. ATENOLOL [Concomitant]
  7. CENTRUM SILVER [Concomitant]
  8. ENALAPRIL MALEATE [Concomitant]
  9. GLYBURIDE [Concomitant]
  10. METFORMIN HCL [Concomitant]
  11. AVANDIA [Concomitant]
  12. PLETAL [Concomitant]

REACTIONS (1)
  - DIVERTICULITIS [None]
